FAERS Safety Report 25725494 (Version 1)
Quarter: 2025Q3

REPORT INFORMATION
  Report Type: Spontaneous
  Country: US (occurrence: US)
  Receive Date: 20250826
  Receipt Date: 20250826
  Transmission Date: 20251020
  Serious: Yes (Life-Threatening, Hospitalization)
  Sender: JAZZ
  Company Number: US-JAZZ PHARMACEUTICALS-2025-US-018883

PATIENT
  Age: 37 Year
  Sex: Male

DRUGS (2)
  1. EPIDIOLEX [Suspect]
     Active Substance: CANNABIDIOL
     Indication: Seizure
  2. EPIDIOLEX [Suspect]
     Active Substance: CANNABIDIOL
     Dosage: 11.5 MILLILITER, BID

REACTIONS (4)
  - Seizure [Recovered/Resolved]
  - Skin injury [Unknown]
  - Eye contusion [Unknown]
  - Wrong technique in product usage process [Unknown]

NARRATIVE: CASE EVENT DATE: 20250724
